FAERS Safety Report 25250328 (Version 1)
Quarter: 2025Q2

REPORT INFORMATION
  Report Type: Spontaneous
  Country: US (occurrence: US)
  Receive Date: 20250429
  Receipt Date: 20250429
  Transmission Date: 20250717
  Serious: No
  Sender: Unknown Manufacturer
  Company Number: US-MELINTA THERAPEUTICS, LLC-US-MLNT-24-00433

PATIENT

DRUGS (2)
  1. KIMYRSA [Suspect]
     Active Substance: ORITAVANCIN DIPHOSPHATE
     Indication: Product used for unknown indication
     Route: 041
     Dates: start: 20240828, end: 20240828
  2. KIMYRSA [Suspect]
     Active Substance: ORITAVANCIN DIPHOSPHATE
     Route: 041

REACTIONS (9)
  - Arthralgia [Unknown]
  - Infusion site erythema [Unknown]
  - Infusion site rash [Unknown]
  - Infusion related reaction [Unknown]
  - Chills [Unknown]
  - Flushing [Unknown]
  - Headache [Unknown]
  - Infusion related reaction [Unknown]
  - Multiple use of single-use product [Unknown]

NARRATIVE: CASE EVENT DATE: 20240828
